FAERS Safety Report 9104078 (Version 1)
Quarter: 2013Q1

REPORT INFORMATION
  Report Type: Spontaneous
  Country: US (occurrence: US)
  Receive Date: 20130219
  Receipt Date: 20130219
  Transmission Date: 20140127
  Serious: No
  Sender: FDA-Public Use
  Company Number: US-PFIZER INC-2013059441

PATIENT
  Age: 42 Year
  Sex: Female
  Weight: 81 kg

DRUGS (1)
  1. DEPO-PROVERA [Suspect]
     Indication: CONTRACEPTION
     Dosage: UNK, EVERY 3 MONTHS

REACTIONS (4)
  - Menorrhagia [Unknown]
  - Nausea [Unknown]
  - Muscle spasms [Unknown]
  - Back pain [Unknown]
